FAERS Safety Report 7415334-6 (Version None)
Quarter: 2011Q2

REPORT INFORMATION
  Report Type: 
  Country: None (occurrence: None)
  Receive Date: 20110414
  Receipt Date: 20110408
  Transmission Date: 20111010
  Serious: Yes (Hospitalization)
  Sender: FDA-Public Use
  Company Number: A0894347A

PATIENT
  Age: 54 Year
  Sex: Male

DRUGS (12)
  1. SYNTHROID [Concomitant]
  2. LABETALOL [Concomitant]
  3. GLIPIZIDE [Concomitant]
  4. ANTIVERT [Concomitant]
  5. ALBUTEROL [Concomitant]
  6. ENALAPRIL MALEATE [Concomitant]
  7. AVANDIA [Suspect]
     Dosage: 4MG TWICE PER DAY
     Route: 048
     Dates: start: 19950101, end: 20081201
  8. NORVASC [Concomitant]
  9. DYAZIDE [Concomitant]
  10. LESCOL XL [Concomitant]
  11. LISINOPRIL [Concomitant]
  12. ROBAXIN [Concomitant]

REACTIONS (2)
  - MYOCARDIAL INFARCTION [None]
  - CEREBROVASCULAR ACCIDENT [None]
